FAERS Safety Report 13322041 (Version 1)
Quarter: 2017Q1

REPORT INFORMATION
  Report Type: Spontaneous
  Country: GB (occurrence: GB)
  Receive Date: 20170310
  Receipt Date: 20170310
  Transmission Date: 20170428
  Serious: Yes (Life-Threatening)
  Sender: FDA-Public Use
  Company Number: GB-FRESENIUS KABI-FK201701932

PATIENT
  Age: 26 Year
  Sex: Female

DRUGS (1)
  1. ADENOSINE INJECTION (MANUFACTURER UNKNOWN) [Suspect]
     Active Substance: ADENOSINE
     Indication: TACHYCARDIA
     Route: 042

REACTIONS (1)
  - Ventricular fibrillation [Recovered/Resolved]
